FAERS Safety Report 17492240 (Version 4)
Quarter: 2020Q3

REPORT INFORMATION
  Report Type: Report from Study
  Country: AU (occurrence: AU)
  Receive Date: 20200304
  Receipt Date: 20200910
  Transmission Date: 20201102
  Serious: Yes (Hospitalization, Other)
  Sender: FDA-Public Use
  Company Number: AU-REGENERON PHARMACEUTICALS, INC.-2020-22394

PATIENT

DRUGS (8)
  1. EYLEA [Suspect]
     Active Substance: AFLIBERCEPT
     Indication: DIABETIC RETINAL OEDEMA
     Dosage: BILATERAL, Q6WK, TOTAL NUMBER OF DOSES UNKNOWN
     Route: 031
     Dates: start: 2019, end: 202008
  2. INSULIN [Concomitant]
     Active Substance: INSULIN NOS
     Indication: DIABETES MELLITUS
     Dosage: 12 IU
     Dates: start: 2017
  3. VALSARTAN. [Concomitant]
     Active Substance: VALSARTAN
     Indication: PRODUCT USED FOR UNKNOWN INDICATION
     Dosage: 320 MG
  4. INSULIN [Concomitant]
     Active Substance: INSULIN NOS
     Dosage: 10 IU
     Dates: start: 2017
  5. LANTUS [Concomitant]
     Active Substance: INSULIN GLARGINE
     Indication: PRODUCT USED FOR UNKNOWN INDICATION
     Dosage: 10 IU, HS
  6. EXFORGE [Concomitant]
     Active Substance: AMLODIPINE BESYLATE\VALSARTAN
     Indication: BLOOD PRESSURE ABNORMAL
  7. NOVORAPID [Concomitant]
     Active Substance: INSULIN ASPART
     Indication: PRODUCT USED FOR UNKNOWN INDICATION
     Dosage: 18 IU, TID
  8. INSULIN [Concomitant]
     Active Substance: INSULIN NOS
     Dosage: 18 IU, HS

REACTIONS (11)
  - Vision blurred [Unknown]
  - Localised infection [Unknown]
  - Photophobia [Unknown]
  - Drug ineffective [Unknown]
  - Swelling face [Recovered/Resolved]
  - Device dislocation [Recovering/Resolving]
  - Cataract [Not Recovered/Not Resolved]
  - Eye laser surgery [Unknown]
  - Peripheral swelling [Not Recovered/Not Resolved]
  - Dyspnoea [Recovered/Resolved]
  - Eye swelling [Recovered/Resolved]

NARRATIVE: CASE EVENT DATE: 20200206
